FAERS Safety Report 4802257-1 (Version None)
Quarter: 2005Q4

REPORT INFORMATION
  Report Type: 
  Country: None (occurrence: None)
  Receive Date: 20051012
  Receipt Date: 20050929
  Transmission Date: 20060501
  Serious: Yes (Hospitalization)
  Sender: FDA-Public Use
  Company Number: 2005US001418

PATIENT
  Age: 13 Year
  Sex: Female

DRUGS (6)
  1. PROGRAF [Suspect]
     Indication: PROPHYLAXIS AGAINST TRANSPLANT REJECTION
     Dosage: 2.00 MG, BID
     Dates: start: 20020601
  2. VALGANCICLOVIR             (VALGANCICLOVIR) [Concomitant]
  3. NIFEDIPINE [Concomitant]
  4. METOPROLOL TARTRATE [Concomitant]
  5. MULTIVITAMINS (ERGOCALCIFEROL, ASCORBIC ACID, PANTHENOL, NICOTINAMIDE, [Concomitant]
  6. POLYSACCHARIDE-IRON COMPLEX [Concomitant]

REACTIONS (11)
  - FATIGUE [None]
  - HEADACHE [None]
  - INTRACRANIAL PRESSURE INCREASED [None]
  - MALAISE [None]
  - NAUSEA [None]
  - PHOTOPHOBIA [None]
  - RETCHING [None]
  - SINUS HEADACHE [None]
  - SINUS OPERATION [None]
  - VOMITING [None]
  - WEIGHT DECREASED [None]
